FAERS Safety Report 19527991 (Version 2)
Quarter: 2021Q4

REPORT INFORMATION
  Report Type: Spontaneous
  Country: US (occurrence: US)
  Receive Date: 20210713
  Receipt Date: 20211007
  Transmission Date: 20220303
  Serious: Yes (Other)
  Sender: FDA-Public Use
  Company Number: US-MYLANLABS-2021M1041369

PATIENT
  Age: 69 Year
  Sex: Male
  Weight: 136 kg

DRUGS (3)
  1. EPINEPHRINE [Suspect]
     Active Substance: EPINEPHRINE
     Indication: Allergy to sting
     Dosage: UNK
     Route: 030
     Dates: start: 20210703, end: 20210703
  2. EPINEPHRINE [Suspect]
     Active Substance: EPINEPHRINE
     Dosage: UNK
     Route: 030
     Dates: start: 20210703, end: 20210703
  3. BENADRYL [Concomitant]
     Active Substance: DIPHENHYDRAMINE HYDROCHLORIDE
     Dosage: 2 DOSAGE FORM (2 TABLETS OF 25 MILLIGRAM)

REACTIONS (5)
  - Syncope [Unknown]
  - Expired product administered [Recovered/Resolved]
  - Device failure [Recovered/Resolved]
  - Therapeutic product effect incomplete [Unknown]
  - Wrong technique in product usage process [Unknown]

NARRATIVE: CASE EVENT DATE: 20210703
